FAERS Safety Report 8159535-0 (Version None)
Quarter: 2012Q1

REPORT INFORMATION
  Report Type: 
  Country: None (occurrence: None)
  Receive Date: 20120223
  Receipt Date: 20120215
  Transmission Date: 20120608
  Serious: Yes (Death)
  Sender: FDA-Public Use
  Company Number: JP-ROCHE-1016981

PATIENT
  Sex: Male

DRUGS (22)
  1. RANIBIZUMAB [Suspect]
     Route: 050
     Dates: start: 20100305
  2. GLAKAY [Concomitant]
  3. METHYCOBAL [Concomitant]
  4. CANDESARTAN CILEXETIL [Concomitant]
  5. RANIBIZUMAB [Suspect]
     Route: 050
     Dates: start: 20100611
  6. PURSENNIDE [Concomitant]
  7. URSO 250 [Concomitant]
  8. AMOBAN [Concomitant]
  9. RANIBIZUMAB [Suspect]
     Indication: AGE-RELATED MACULAR DEGENERATION
     Route: 050
     Dates: start: 20090415
  10. LEVOFLOXACIN [Concomitant]
     Dates: start: 20090401, end: 20101101
  11. DICLOD [Concomitant]
     Dates: start: 20090709, end: 20091023
  12. RANIBIZUMAB [Suspect]
     Route: 050
     Dates: start: 20090515
  13. RANIBIZUMAB [Suspect]
     Route: 050
     Dates: start: 20100402
  14. EXCELASE (UNK INGREDIENTS) [Concomitant]
  15. RANIBIZUMAB [Suspect]
     Route: 050
     Dates: start: 20100809
  16. VIGAMOX [Concomitant]
     Dates: start: 20090705, end: 20091110
  17. RANIBIZUMAB [Suspect]
     Route: 050
     Dates: start: 20090612
  18. HYALEIN [Concomitant]
     Dates: start: 20091023
  19. RANIBIZUMAB [Suspect]
     Route: 050
     Dates: start: 20101105
  20. GLYCYRON [Concomitant]
  21. DILTIAZEM HCL [Concomitant]
  22. OFLOXACIN [Concomitant]
     Dates: start: 20090807, end: 20091023

REACTIONS (2)
  - METASTATIC NEOPLASM [None]
  - METASTASES TO LUNG [None]
